FAERS Safety Report 18612485 (Version 1)
Quarter: 2020Q4

REPORT INFORMATION
  Report Type: Spontaneous
  Country: US (occurrence: US)
  Receive Date: 20201214
  Receipt Date: 20201214
  Transmission Date: 20210114
  Serious: Yes (Other)
  Sender: FDA-Public Use
  Company Number: US-PFM-2020-17598

PATIENT
  Sex: Female
  Weight: 3.63 kg

DRUGS (1)
  1. HEMANGEOL [Suspect]
     Active Substance: PROPRANOLOL HYDROCHLORIDE
     Indication: INFANTILE HAEMANGIOMA
     Dosage: 0.5 ML, BID (2/DAY)
     Route: 065

REACTIONS (6)
  - Vomiting [Unknown]
  - Hallucination [Unknown]
  - Alopecia [Unknown]
  - Sleep terror [Unknown]
  - Teething [Unknown]
  - Gastrooesophageal reflux disease [Unknown]
